FAERS Safety Report 9187011 (Version 1)
Quarter: 2013Q1

REPORT INFORMATION
  Report Type: Spontaneous
  Country: NL (occurrence: NL)
  Receive Date: 20130325
  Receipt Date: 20130325
  Transmission Date: 20140127
  Serious: Yes (Hospitalization)
  Sender: FDA-Public Use
  Company Number: NL-EISAI INC-E3810-06317-SPO-NL

PATIENT
  Sex: Male

DRUGS (2)
  1. PARIET (RABEPRAZOLE) [Suspect]
     Dosage: UNKNOWN
     Route: 048
     Dates: end: 20130120
  2. RABEPRAZOLE SODIUM [Suspect]
     Dosage: UNKNOWN
     Route: 065
     Dates: start: 20130121

REACTIONS (2)
  - Myocardial infarction [Unknown]
  - Product substitution issue [Recovered/Resolved]
